FAERS Safety Report 16627452 (Version 2)
Quarter: 2019Q3

REPORT INFORMATION
  Report Type: Report from Study
  Country: JP (occurrence: JP)
  Receive Date: 20190724
  Receipt Date: 20190729
  Transmission Date: 20191004
  Serious: Yes (Hospitalization)
  Sender: FDA-Public Use
  Company Number: JP-REGENERON PHARMACEUTICALS, INC.-2019-40351

PATIENT

DRUGS (9)
  1. AMLODIPINE BESILATE [Concomitant]
     Active Substance: AMLODIPINE BESYLATE
     Indication: HYPERTENSION
     Dosage: 5 MG, QD
     Route: 048
     Dates: start: 2015
  2. UMECLIDINIUM BROMIDE [Concomitant]
     Active Substance: UMECLIDINIUM BROMIDE
     Indication: CHRONIC OBSTRUCTIVE PULMONARY DISEASE
     Dosage: 1 INHALATION, QD
     Route: 055
     Dates: start: 20190404, end: 20190630
  3. CELECOXIB. [Concomitant]
     Active Substance: CELECOXIB
     Indication: SCOLIOSIS
     Dosage: 200 MG, BID
     Route: 048
     Dates: end: 20190630
  4. ESOMEPRAZOLE MAGNESIUM DIHYDRATE [Concomitant]
     Active Substance: ESOMEPRAZOLE MAGNESIUM
     Indication: DYSPEPSIA
     Dosage: 2 MG, QD
     Route: 048
     Dates: start: 20190507, end: 20190630
  5. CEMIPLIMAB [Suspect]
     Active Substance: CEMIPLIMAB
     Indication: LUNG ADENOCARCINOMA STAGE III
     Dosage: 350 MG, Q3W
     Route: 042
     Dates: start: 20190220, end: 20190605
  6. LOXOPROFEN SODIUM HYDRATE [Concomitant]
     Active Substance: LOXOPROFEN SODIUM DIHYDRATE
     Indication: SCOLIOSIS
     Dosage: 1 PATCH, QD
     Route: 062
     Dates: end: 20190630
  7. BUDESONIDE. [Concomitant]
     Active Substance: BUDESONIDE
     Indication: CHRONIC OBSTRUCTIVE PULMONARY DISEASE
     Dosage: 4 PUFF, BID
     Route: 055
     Dates: end: 20190701
  8. HEPARINOID [Concomitant]
     Active Substance: CHONDROITIN SULFATE (BOVINE)
     Indication: PRURITUS
     Dosage: UNK, BID
     Route: 062
     Dates: start: 20190314
  9. FELBINAC [Concomitant]
     Active Substance: FELBINAC
     Indication: SCOLIOSIS
     Dosage: UNK, AS NECESSARY
     Route: 062
     Dates: end: 20190630

REACTIONS (1)
  - Adrenocorticotropic hormone deficiency [Recovered/Resolved]

NARRATIVE: CASE EVENT DATE: 20190701
